FAERS Safety Report 25468286 (Version 1)
Quarter: 2025Q2

REPORT INFORMATION
  Report Type: Spontaneous
  Country: US (occurrence: None)
  Receive Date: 20250621
  Receipt Date: 20250621
  Transmission Date: 20250716
  Serious: Yes (unspecified)
  Sender: FDA-CTU
  Company Number: None

PATIENT
  Age: 56 Year
  Sex: Female
  Weight: 111.15 kg

DRUGS (13)
  1. QELBREE [Suspect]
     Active Substance: VILOXAZINE HYDROCHLORIDE
     Indication: Attention deficit hyperactivity disorder
     Route: 048
     Dates: start: 20250618, end: 20250620
  2. METOPROLOL [Concomitant]
     Active Substance: METOPROLOL
  3. FLECAINIDE [Concomitant]
     Active Substance: FLECAINIDE
  4. PROGESTERONE [Concomitant]
     Active Substance: PROGESTERONE
  5. ESTRADIOL [Concomitant]
     Active Substance: ESTRADIOL
  6. MONTELUKAST [Concomitant]
     Active Substance: MONTELUKAST
  7. AMLODIPINE [Concomitant]
     Active Substance: AMLODIPINE BESYLATE
  8. FLUTICASONE [Concomitant]
     Active Substance: FLUTICASONE
  9. SEMAGLUTIDE [Concomitant]
     Active Substance: SEMAGLUTIDE
  10. bipap machine [Concomitant]
  11. PATADAY [Concomitant]
     Active Substance: OLOPATADINE HYDROCHLORIDE
  12. VITAMINS [Concomitant]
     Active Substance: VITAMINS
  13. CALCIUM [Concomitant]
     Active Substance: CALCIUM

REACTIONS (10)
  - Pruritus [None]
  - Headache [None]
  - Abdominal discomfort [None]
  - Urticaria [None]
  - Heart rate increased [None]
  - Feeling abnormal [None]
  - Tremor [None]
  - Fatigue [None]
  - Nocturia [None]
  - Feeling abnormal [None]

NARRATIVE: CASE EVENT DATE: 20250620
